FAERS Safety Report 15095726 (Version 1)
Quarter: 2018Q3

REPORT INFORMATION
  Report Type: Spontaneous
  Country: US (occurrence: US)
  Receive Date: 20180702
  Receipt Date: 20180702
  Transmission Date: 20181010
  Serious: No
  Sender: FDA-Public Use
  Company Number: US-BAYER-2018-123617

PATIENT
  Sex: Female

DRUGS (2)
  1. SENNOSIDE [Concomitant]
     Active Substance: SENNOSIDES
  2. MIRALAX [Suspect]
     Active Substance: POLYETHYLENE GLYCOL 3350
     Route: 065

REACTIONS (2)
  - Urine output increased [Unknown]
  - Abnormal faeces [Unknown]
